FAERS Safety Report 8961140 (Version 1)
Quarter: 2012Q4

REPORT INFORMATION
  Report Type: 
  Country: US (occurrence: US)
  Receive Date: 20121212
  Receipt Date: 20121212
  Transmission Date: 20130627
  Serious: Yes (Hospitalization)
  Sender: FDA-Public Use
  Company Number: US-GLAXOSMITHKLINE-A1004385A

PATIENT
  Age: 60 Year
  Sex: Female

DRUGS (5)
  1. VOTRIENT [Suspect]
     Indication: RENAL CANCER
     Route: 048
     Dates: end: 201201
  2. SYNTHROID [Concomitant]
  3. ALLOPURINAL [Concomitant]
  4. PREVACID [Concomitant]
  5. NORVASC [Concomitant]

REACTIONS (5)
  - Dehydration [Unknown]
  - Diarrhoea [Unknown]
  - Fatigue [Unknown]
  - Hair colour changes [Unknown]
  - Drug effect decreased [Unknown]
